FAERS Safety Report 9259923 (Version 2)
Quarter: 2013Q2

REPORT INFORMATION
  Report Type: Spontaneous
  Country: RO (occurrence: RO)
  Receive Date: 20130429
  Receipt Date: 20130520
  Transmission Date: 20140414
  Serious: Yes (Death, Hospitalization, Other)
  Sender: FDA-Public Use
  Company Number: RO-ROCHE-1218793

PATIENT
  Age: 66 Year
  Sex: Male
  Weight: 75 kg

DRUGS (7)
  1. TOCILIZUMAB [Suspect]
     Indication: RHEUMATOID ARTHRITIS
     Route: 042
     Dates: start: 20120221, end: 20120914
  2. METOTREXAT [Concomitant]
     Route: 065
  3. PREDNISONE [Concomitant]
     Route: 065
  4. PERINDOPRIL [Concomitant]
     Route: 065
  5. SINTROM [Concomitant]
     Route: 065
  6. FOKUSIN [Concomitant]
     Route: 065
  7. ASPENTER [Concomitant]
     Route: 065

REACTIONS (5)
  - Ventricular fibrillation [Fatal]
  - Fatigue [Not Recovered/Not Resolved]
  - Tachyarrhythmia [Not Recovered/Not Resolved]
  - Pyramidal tract syndrome [Unknown]
  - Peripheral sensorimotor neuropathy [Unknown]
